FAERS Safety Report 12093224 (Version 2)
Quarter: 2016Q1

REPORT INFORMATION
  Report Type: Spontaneous
  Country: GB (occurrence: GB)
  Receive Date: 20160219
  Receipt Date: 20160318
  Transmission Date: 20160526
  Serious: Yes (Other)
  Sender: FDA-Public Use
  Company Number: GB-009507513-1602GBR008501

PATIENT
  Age: 39 Year
  Sex: Female

DRUGS (1)
  1. MOMETASONE FUROATE. [Suspect]
     Active Substance: MOMETASONE FUROATE
     Indication: SINUS CONGESTION
     Dosage: 4 DF, QD
     Route: 045

REACTIONS (1)
  - Rhinorrhoea [Recovered/Resolved]
